FAERS Safety Report 7247127-7 (Version None)
Quarter: 2011Q1

REPORT INFORMATION
  Report Type: 
  Country: None (occurrence: None)
  Receive Date: 20110127
  Receipt Date: 20100813
  Transmission Date: 20110831
  Serious: No
  Sender: FDA-Public Use
  Company Number: US-BAUSCH-2010BL004520

PATIENT
  Age: 45 Year
  Sex: Female

DRUGS (5)
  1. CLARITIN /USA/ [Concomitant]
     Indication: HYPERSENSITIVITY
  2. ALAWAY [Suspect]
     Route: 047
     Dates: start: 20100802, end: 20100805
  3. ALAWAY [Suspect]
     Route: 047
     Dates: start: 20100802, end: 20100805
  4. ALAWAY [Suspect]
     Indication: EYE SWELLING
     Route: 047
     Dates: start: 20100806, end: 20100806
  5. ALAWAY [Suspect]
     Indication: HISTAMINE ABNORMAL
     Route: 047
     Dates: start: 20100806, end: 20100806

REACTIONS (3)
  - INSTILLATION SITE PAIN [None]
  - URTICARIA [None]
  - EYE PRURITUS [None]
